FAERS Safety Report 23329625 (Version 1)
Quarter: 2023Q4

REPORT INFORMATION
  Report Type: Spontaneous
  Country: US (occurrence: US)
  Receive Date: 20231222
  Receipt Date: 20231222
  Transmission Date: 20240109
  Serious: No
  Sender: FDA-Public Use
  Company Number: US-RECKITT BENCKISER HEALTHCARE INT LIMITED-RB-084279-2023

PATIENT

DRUGS (2)
  1. DELSYM [Suspect]
     Active Substance: DEXTROMETHORPHAN
     Indication: Cough
     Dosage: UNKNOWN
     Route: 048
  2. DELSYM [Suspect]
     Active Substance: DEXTROMETHORPHAN
     Indication: Respiratory tract congestion

REACTIONS (1)
  - Therapeutic product effect incomplete [Not Recovered/Not Resolved]
